FAERS Safety Report 16400543 (Version 1)
Quarter: 2019Q2

REPORT INFORMATION
  Report Type: Report from Study
  Country: US (occurrence: US)
  Receive Date: 20190606
  Receipt Date: 20190606
  Transmission Date: 20190711
  Serious: Yes (Hospitalization)
  Sender: FDA-Public Use
  Company Number: US-JNJFOC-20190600413

PATIENT
  Age: 79 Year
  Sex: Female

DRUGS (24)
  1. TRAVATAN Z [Concomitant]
     Active Substance: TRAVOPROST
  2. SERTRALINE HCL [Concomitant]
     Active Substance: SERTRALINE HYDROCHLORIDE
  3. MIRALAX [Concomitant]
     Active Substance: POLYETHYLENE GLYCOL 3350
  4. ALBUTEROL SULFATE. [Concomitant]
     Active Substance: ALBUTEROL SULFATE
  5. IMBRUVICA [Suspect]
     Active Substance: IBRUTINIB
     Indication: MANTLE CELL LYMPHOMA
     Route: 048
     Dates: start: 201904
  6. VITAMIN D [Concomitant]
     Active Substance: VITAMIN D NOS
  7. SYNTHROID [Concomitant]
     Active Substance: LEVOTHYROXINE SODIUM
  8. SPIRONOLACTONE. [Concomitant]
     Active Substance: SPIRONOLACTONE
  9. OMEPRAZOLE. [Concomitant]
     Active Substance: OMEPRAZOLE
  10. FENTANYL. [Concomitant]
     Active Substance: FENTANYL
  11. SYMBICORT [Concomitant]
     Active Substance: BUDESONIDE\FORMOTEROL FUMARATE DIHYDRATE
  12. ATORVASTATIN CALCIUM. [Concomitant]
     Active Substance: ATORVASTATIN CALCIUM
  13. ATIVAN [Concomitant]
     Active Substance: LORAZEPAM
  14. DULOXETINE HCL [Concomitant]
     Active Substance: DULOXETINE HYDROCHLORIDE
  15. OXYCODONE HYDROCHLORIDE. [Concomitant]
     Active Substance: OXYCODONE HYDROCHLORIDE
  16. POTASSIUM CHLORIDE. [Concomitant]
     Active Substance: POTASSIUM CHLORIDE
  17. AMITIZA [Concomitant]
     Active Substance: LUBIPROSTONE
  18. ALLOPURINOL. [Concomitant]
     Active Substance: ALLOPURINOL
  19. ZOFRAN [Concomitant]
     Active Substance: ONDANSETRON HYDROCHLORIDE
  20. COLACE [Concomitant]
     Active Substance: DOCUSATE SODIUM
  21. ASPIRIN. [Concomitant]
     Active Substance: ASPIRIN
  22. PREMARIN [Concomitant]
     Active Substance: ESTROGENS, CONJUGATED
  23. LYRICA [Concomitant]
     Active Substance: PREGABALIN
  24. BUMETANIDE. [Concomitant]
     Active Substance: BUMETANIDE

REACTIONS (3)
  - Hallucination, visual [Recovered/Resolved]
  - Gingival blister [Recovered/Resolved]
  - Tongue blistering [Recovered/Resolved]

NARRATIVE: CASE EVENT DATE: 20190520
